FAERS Safety Report 8319690-6 (Version None)
Quarter: 2012Q2

REPORT INFORMATION
  Report Type: 
  Country: None (occurrence: None)
  Receive Date: 20120427
  Receipt Date: 20120425
  Transmission Date: 20120825
  Serious: Yes (Death, Life-Threatening, Hospitalization, Other)
  Sender: FDA-Public Use
  Company Number: JP-GENZYME-THYM-1002790

PATIENT
  Sex: Male
  Weight: 54 kg

DRUGS (14)
  1. FLUDARA [Suspect]
     Indication: PRODUCT USED FOR UNKNOWN INDICATION
     Dosage: 38 MG, QD, DOSING FREQUENCY 6 TIMES
     Route: 065
  2. CYCLOSPORINE [Concomitant]
     Indication: PROPHYLAXIS AGAINST GRAFT VERSUS HOST DISEASE
     Dosage: UNK
     Route: 065
     Dates: start: 20100511, end: 20100602
  3. CYTARABINE [Concomitant]
     Indication: PRODUCT USED FOR UNKNOWN INDICATION
     Dosage: UNK
     Route: 065
  4. HUMAN RED BLOOD CELLS [Concomitant]
     Indication: MYELODYSPLASTIC SYNDROME
     Dosage: UNK
     Route: 065
     Dates: start: 20090101, end: 20100702
  5. FLUDARABINE PHOSPHATE [Concomitant]
     Indication: BONE MARROW CONDITIONING REGIMEN
     Dosage: UNK
     Route: 065
     Dates: start: 20100505, end: 20100510
  6. ACYCLOVIR [Concomitant]
     Indication: INFECTION PROPHYLAXIS
     Dosage: UNK
     Route: 065
     Dates: start: 20100603, end: 20100611
  7. ACYCLOVIR [Concomitant]
     Dosage: UNK
     Route: 065
     Dates: start: 20100505, end: 20100602
  8. METHYLPREDNISOLONE SODIUM SUCCINATE [Concomitant]
     Indication: PREMEDICATION
     Dosage: UNK
     Route: 065
     Dates: start: 20100506, end: 20100507
  9. DORIPENEM HYDRATE [Concomitant]
     Indication: FEBRILE NEUTROPENIA
     Dosage: UNK
     Route: 065
     Dates: start: 20100503, end: 20100524
  10. METHOTREXATE [Concomitant]
     Indication: PROPHYLAXIS AGAINST GRAFT VERSUS HOST DISEASE
     Dosage: UNK
     Route: 065
     Dates: start: 20100513, end: 20100523
  11. THYMOGLOBULIN [Suspect]
     Indication: BONE MARROW CONDITIONING REGIMEN
     Dosage: 67 MG, QD
     Route: 042
     Dates: start: 20100506, end: 20100507
  12. BUSULFAN [Concomitant]
     Indication: BONE MARROW CONDITIONING REGIMEN
     Dosage: UNK
     Route: 065
     Dates: start: 20100508, end: 20100509
  13. PLATELETS [Concomitant]
     Indication: MYELODYSPLASTIC SYNDROME
     Dosage: UNK
     Route: 065
     Dates: start: 20100517, end: 20100701
  14. MELPHALAN HYDROCHLORIDE [Concomitant]
     Indication: PRODUCT USED FOR UNKNOWN INDICATION
     Route: 065

REACTIONS (7)
  - GRAFT VERSUS HOST DISEASE [None]
  - STAPHYLOCOCCAL SEPSIS [None]
  - ACUTE GRAFT VERSUS HOST DISEASE [None]
  - SYSTEMIC CANDIDA [None]
  - FEBRILE NEUTROPENIA [None]
  - CYTOMEGALOVIRUS TEST POSITIVE [None]
  - RENAL IMPAIRMENT [None]
